FAERS Safety Report 13635296 (Version 1)
Quarter: 2017Q2

REPORT INFORMATION
  Report Type: Spontaneous
  Country: US (occurrence: US)
  Receive Date: 20170609
  Receipt Date: 20170609
  Transmission Date: 20170830
  Serious: No
  Sender: FDA-Public Use
  Company Number: US-PFIZER INC-2017250671

PATIENT
  Age: 81 Year
  Sex: Male

DRUGS (2)
  1. SUTENT [Suspect]
     Active Substance: SUNITINIB MALATE
     Indication: PROSTATE CANCER
     Dosage: 50 MG, DAILY
     Route: 048
  2. SUTENT [Suspect]
     Active Substance: SUNITINIB MALATE
     Indication: METASTASIS

REACTIONS (7)
  - Yellow skin [Unknown]
  - Constipation [Unknown]
  - Product use in unapproved indication [Unknown]
  - Blister [Unknown]
  - Dizziness [Unknown]
  - Epistaxis [Unknown]
  - Headache [Unknown]
